FAERS Safety Report 20645314 (Version 1)
Quarter: 2022Q1

REPORT INFORMATION
  Report Type: Spontaneous
  Country: US (occurrence: None)
  Receive Date: 20220328
  Receipt Date: 20220328
  Transmission Date: 20220423
  Serious: Yes (Disabling)
  Sender: FDA-Public Use
  Company Number: None

PATIENT
  Age: 32 Year
  Sex: Male
  Weight: 81 kg

DRUGS (7)
  1. SUBOXONE [Suspect]
     Active Substance: BUPRENORPHINE HYDROCHLORIDE\NALOXONE HYDROCHLORIDE
     Indication: Drug use disorder
     Dosage: OTHER QUANTITY : 2 SUBLINGUAL FILM;?FREQUENCY : TWICE A DAY;?
     Route: 060
     Dates: start: 20181001, end: 20210930
  2. OMEPRAZOLE [Concomitant]
     Active Substance: OMEPRAZOLE
  3. GABAPENTIN [Concomitant]
     Active Substance: GABAPENTIN
  4. OXCARBAZEPINE [Concomitant]
     Active Substance: OXCARBAZEPINE
  5. methlyphinidate [Concomitant]
  6. METHADONE [Concomitant]
     Active Substance: METHADONE HYDROCHLORIDE
  7. UNSPECIFIED INGREDIENT [Concomitant]
     Active Substance: UNSPECIFIED INGREDIENT

REACTIONS (2)
  - Dental caries [None]
  - Toothache [None]

NARRATIVE: CASE EVENT DATE: 20181101
